FAERS Safety Report 19415444 (Version 2)
Quarter: 2021Q4

REPORT INFORMATION
  Report Type: Other
  Country: JP (occurrence: JP)
  Receive Date: 20210614
  Receipt Date: 20211029
  Transmission Date: 20220303
  Serious: Yes (Other)
  Sender: FDA-Public Use
  Company Number: JP-ROCHE-2844436

PATIENT

DRUGS (8)
  1. RITUXIMAB [Suspect]
     Active Substance: RITUXIMAB
     Indication: Anti-neutrophil cytoplasmic antibody positive vasculitis
     Route: 042
  2. MYCOPHENOLATE MOFETIL [Suspect]
     Active Substance: MYCOPHENOLATE MOFETIL
     Indication: Anti-neutrophil cytoplasmic antibody positive vasculitis
     Route: 065
  3. PREDNISOLONE [Suspect]
     Active Substance: PREDNISOLONE
     Indication: Anti-neutrophil cytoplasmic antibody positive vasculitis
     Dosage: IN REDUCED-DOSE GLUCOCORTICOID GROUP AND WAS STOPPED AT 5 MONTHS
     Route: 065
  4. PREDNISOLONE [Suspect]
     Active Substance: PREDNISOLONE
     Dosage: IN HIGH-DOSE GLUCOCORTICOID GROUP AND WAS REDUCED TO A TOTAL OF 10 MG/D BY 5 MONTHS
     Route: 065
  5. AZATHIOPRINE [Suspect]
     Active Substance: AZATHIOPRINE
     Indication: Anti-neutrophil cytoplasmic antibody positive vasculitis
     Dosage: IN REDUCED-DOSE GLUCOCORTICOID GROUP AND WAS STOPPED AT 5 MONTHS
     Route: 065
  6. AZATHIOPRINE [Suspect]
     Active Substance: AZATHIOPRINE
     Dosage: IN HIGH-DOSE GLUCOCORTICOID GROUP AND WAS REDUCED TO A TOTAL OF 10 MG/D BY 5 MONTHS
     Route: 065
  7. CYCLOPHOSPHAMIDE [Suspect]
     Active Substance: CYCLOPHOSPHAMIDE
     Indication: Anti-neutrophil cytoplasmic antibody positive vasculitis
     Dosage: IN REDUCED-DOSE GLUCOCORTICOID GROUP AND WAS STOPPED AT 5 MONTHS
     Route: 065
  8. CYCLOPHOSPHAMIDE [Suspect]
     Active Substance: CYCLOPHOSPHAMIDE
     Dosage: IN HIGH-DOSE GLUCOCORTICOID GROUP AND WAS REDUCED TO A TOTAL OF 10 MG/D BY 5 MONTHS
     Route: 065

REACTIONS (7)
  - Infection [Unknown]
  - Varicella [Unknown]
  - Disseminated tuberculosis [Unknown]
  - Aspergillus infection [Unknown]
  - Pneumocystis jirovecii pneumonia [Unknown]
  - Colon cancer [Unknown]
  - Lung neoplasm malignant [Unknown]
